FAERS Safety Report 6924790-9 (Version None)
Quarter: 2010Q3

REPORT INFORMATION
  Report Type: 
  Country: None (occurrence: None)
  Receive Date: 20100816
  Receipt Date: 20100810
  Transmission Date: 20110219
  Serious: No
  Sender: FDA-Public Use
  Company Number: US-BIOGENIDEC-2010BI027472

PATIENT
  Age: 41 Year
  Sex: Female

DRUGS (2)
  1. AVONEX [Suspect]
     Indication: MULTIPLE SCLEROSIS
     Route: 030
     Dates: start: 20030830
  2. AVONEX [Suspect]
     Route: 030
     Dates: start: 20020830, end: 20030830

REACTIONS (2)
  - DRUG DEPENDENCE [None]
  - PYREXIA [None]
